FAERS Safety Report 12930830 (Version 2)
Quarter: 2017Q1

REPORT INFORMATION
  Report Type: Spontaneous
  Country: DE (occurrence: DE)
  Receive Date: 20161110
  Receipt Date: 20170106
  Transmission Date: 20170428
  Serious: Yes (Death, Hospitalization)
  Sender: FDA-Public Use
  Company Number: DE-JNJFOC-20161101429

PATIENT
  Age: 90 Year
  Sex: Male

DRUGS (10)
  1. RISPERIDONE. [Suspect]
     Active Substance: RISPERIDONE
     Indication: PRODUCT USED FOR UNKNOWN INDICATION
     Route: 048
     Dates: start: 20151002, end: 20151022
  2. TAMSULOSIN [Concomitant]
     Active Substance: TAMSULOSIN
     Dosage: FOR LONG TIME
     Route: 048
  3. OPIPRAMOL [Suspect]
     Active Substance: OPIPRAMOL
     Indication: PRODUCT USED FOR UNKNOWN INDICATION
     Route: 048
     Dates: start: 20130701, end: 20151021
  4. METOPROLOL. [Suspect]
     Active Substance: METOPROLOL
     Indication: PRODUCT USED FOR UNKNOWN INDICATION
     Route: 048
  5. PANTOPRAZOLE [Concomitant]
     Active Substance: PANTOPRAZOLE SODIUM
     Dosage: FOR LONG TIME
     Route: 048
  6. HALOPERIDOL. [Suspect]
     Active Substance: HALOPERIDOL
     Indication: PRODUCT USED FOR UNKNOWN INDICATION
     Route: 048
     Dates: start: 20151024, end: 20151024
  7. MELPERON [Interacting]
     Active Substance: MELPERONE
     Indication: AGITATION
     Route: 048
     Dates: start: 20151014, end: 20151022
  8. ASPIRIN. [Concomitant]
     Active Substance: ASPIRIN
     Dosage: FOR LONG TIME
     Route: 048
  9. HALOPERIDOL. [Suspect]
     Active Substance: HALOPERIDOL
     Indication: PRODUCT USED FOR UNKNOWN INDICATION
     Route: 048
     Dates: start: 20151022, end: 20151022
  10. FOLIC ACID. [Concomitant]
     Active Substance: FOLIC ACID
     Dosage: FOR LONG TIME
     Route: 048

REACTIONS (10)
  - Personality change [Unknown]
  - Death [Fatal]
  - Drug interaction [Unknown]
  - Intentional self-injury [Unknown]
  - Movement disorder [Unknown]
  - Disorientation [Unknown]
  - Dysphagia [Unknown]
  - Dehydration [Unknown]
  - Extrapyramidal disorder [Unknown]
  - Drug level increased [Unknown]

NARRATIVE: CASE EVENT DATE: 20151014
